FAERS Safety Report 7442512-2 (Version None)
Quarter: 2011Q2

REPORT INFORMATION
  Report Type: 
  Country: None (occurrence: None)
  Receive Date: 20110428
  Receipt Date: 20110418
  Transmission Date: 20111010
  Serious: Yes (Other)
  Sender: FDA-Public Use
  Company Number: TR-ROCHE-773560

PATIENT

DRUGS (2)
  1. PEGINTERFERON ALFA-2A [Suspect]
     Dosage: DRUG: PEGASYS
     Route: 065
  2. LAMIVUDINE [Suspect]
     Dosage: DRUG: LAMIVUDINE, FREQUENCY: PER DAY
     Route: 065

REACTIONS (4)
  - TINNITUS [None]
  - EAR PAIN [None]
  - BALANCE DISORDER [None]
  - VERTIGO [None]
